FAERS Safety Report 4842230-0 (Version None)
Quarter: 2005Q4

REPORT INFORMATION
  Report Type: 
  Country: None (occurrence: None)
  Receive Date: 20051129
  Receipt Date: 20051116
  Transmission Date: 20060501
  Serious: Yes (Hospitalization)
  Sender: FDA-Public Use
  Company Number: 219584

PATIENT
  Age: 64 Year
  Sex: Male

DRUGS (14)
  1. NUTROPIN AQ [Suspect]
     Indication: GROWTH HORMONE DEFICIENCY
     Dosage: 0.25 MG, QD, SUBCUTANEOUS
     Route: 058
     Dates: start: 20040922
  2. FLOMAX [Concomitant]
  3. FLORINEF 9FLUDROCORTISONE ACETATE) [Concomitant]
  4. TESTOSTERONE [Concomitant]
  5. FOSAMAX [Concomitant]
  6. VIAGRA [Concomitant]
  7. OXYCONTIN [Concomitant]
  8. PLAVIX [Concomitant]
  9. ASPIRIN [Concomitant]
  10. CALCIUM (CALCIUM NOS) [Concomitant]
  11. SIMVASTATIN [Concomitant]
  12. MULTIVITAMIN [Concomitant]
  13. VITAMINS C + E (VITAMIN E, ASCORBIC ACID) [Concomitant]
  14. SERTRALINE HCL [Concomitant]

REACTIONS (10)
  - ACUTE PRERENAL FAILURE [None]
  - ADRENAL INSUFFICIENCY [None]
  - DIZZINESS [None]
  - FALL [None]
  - HYPOTENSION [None]
  - HYPOVOLAEMIA [None]
  - JOINT INJURY [None]
  - LABORATORY TEST ABNORMAL [None]
  - RENAL FAILURE ACUTE [None]
  - SYNCOPE [None]
